FAERS Safety Report 10787017 (Version 1)
Quarter: 2015Q1

REPORT INFORMATION
  Report Type: Spontaneous
  Country: US (occurrence: US)
  Receive Date: 20150211
  Receipt Date: 20150211
  Transmission Date: 20150721
  Serious: No
  Sender: FDA-Public Use
  Company Number: US-GLAXOSMITHKLINE-US2014040375

PATIENT
  Age: 82 Year
  Sex: Male

DRUGS (6)
  1. IPRATROPIUM NASAL SPRAY [Concomitant]
  2. SOTALOL. [Concomitant]
     Active Substance: SOTALOL
  3. BREO ELLIPTA [Suspect]
     Active Substance: FLUTICASONE FUROATE\VILANTEROL TRIFENATATE
     Indication: CHRONIC OBSTRUCTIVE PULMONARY DISEASE
     Dosage: 1 PUFF(S), 1D
     Route: 055
     Dates: start: 20141219
  4. COUMADIN [Concomitant]
     Active Substance: WARFARIN SODIUM
  5. DONEPEZIL [Concomitant]
     Active Substance: DONEPEZIL
  6. PRAVASTATIN [Concomitant]
     Active Substance: PRAVASTATIN\PRAVASTATIN SODIUM

REACTIONS (2)
  - Lip blister [Recovering/Resolving]
  - Lip swelling [Recovered/Resolved]

NARRATIVE: CASE EVENT DATE: 20141221
